FAERS Safety Report 13748817 (Version 1)
Quarter: 2017Q3

REPORT INFORMATION
  Report Type: Spontaneous
  Country: US (occurrence: US)
  Receive Date: 20170712
  Receipt Date: 20170712
  Transmission Date: 20171127
  Serious: Yes (Other)
  Sender: FDA-Public Use
  Company Number: None

PATIENT
  Age: 28 Year
  Sex: Female
  Weight: 59.4 kg

DRUGS (1)
  1. SUBOXONE [Suspect]
     Active Substance: BUPRENORPHINE HYDROCHLORIDE\NALOXONE HYDROCHLORIDE
     Indication: DRUG DEPENDENCE
     Route: 060
     Dates: start: 20170705, end: 20170711

REACTIONS (7)
  - Oral mucosal erythema [None]
  - Stomatitis [None]
  - Swelling [None]
  - Withdrawal syndrome [None]
  - Vomiting [None]
  - Diarrhoea [None]
  - Product dosage form issue [None]

NARRATIVE: CASE EVENT DATE: 20170705
